FAERS Safety Report 4587861-0 (Version None)
Quarter: 2005Q1

REPORT INFORMATION
  Report Type: 
  Country: None (occurrence: None)
  Receive Date: 20050125
  Receipt Date: 20040914
  Transmission Date: 20050727
  Serious: No
  Sender: FDA-Public Use
  Company Number: USA040876771

PATIENT
  Age: 80 Year
  Sex: Female

DRUGS (4)
  1. FORTEO [Suspect]
     Indication: OSTEOPOROSIS
     Dates: start: 20040601
  2. TUMS (CALCIUM CARBONATE) [Concomitant]
  3. FOSAMAX [Concomitant]
  4. SYNTHROID [Concomitant]

REACTIONS (2)
  - THYROID FUNCTION TEST ABNORMAL [None]
  - URINE CALCIUM INCREASED [None]
